FAERS Safety Report 25030614 (Version 1)
Quarter: 2025Q1

REPORT INFORMATION
  Report Type: Spontaneous
  Country: FR (occurrence: FR)
  Receive Date: 20250303
  Receipt Date: 20250303
  Transmission Date: 20250409
  Serious: Yes (Hospitalization)
  Sender: TEVA
  Company Number: None

PATIENT
  Age: 76 Year
  Sex: Male

DRUGS (3)
  1. ATORVASTATIN [Suspect]
     Active Substance: ATORVASTATIN
     Indication: Hypercholesterolaemia
     Route: 048
     Dates: start: 20250111, end: 20250114
  2. OMNIPAQUE [Suspect]
     Active Substance: IOHEXOL
     Indication: Imaging procedure
     Route: 042
     Dates: start: 20250111
  3. KARDEGIC [Suspect]
     Active Substance: ASPIRIN DL-LYSINE
     Indication: Platelet aggregation inhibition
     Route: 048
     Dates: start: 20250111, end: 20250114

REACTIONS (2)
  - Rash maculo-papular [Recovered/Resolved]
  - Eosinophil count increased [Recovered/Resolved]

NARRATIVE: CASE EVENT DATE: 20250114
